FAERS Safety Report 5923010-1 (Version None)
Quarter: 2008Q4

REPORT INFORMATION
  Report Type: 
  Country: None (occurrence: None)
  Receive Date: 20081018
  Receipt Date: 20081009
  Transmission Date: 20090506
  Serious: Yes (Other)
  Sender: FDA-Public Use
  Company Number: FR-PFIZER INC-2008073401

PATIENT
  Sex: Female
  Weight: 68 kg

DRUGS (4)
  1. TAHOR [Suspect]
     Indication: HYPERCHOLESTEROLAEMIA
     Route: 048
     Dates: start: 20070403, end: 20070101
  2. AMLOD [Concomitant]
     Indication: HYPERTENSION
     Dosage: DAILY DOSE:10MG-FREQ:DAILY
     Route: 048
     Dates: start: 20010101
  3. LASIX [Concomitant]
     Indication: HYPERTENSION
     Dosage: DAILY DOSE:40MG-FREQ:DAILY
     Route: 048
     Dates: start: 20010101
  4. KARDEGIC [Concomitant]
     Indication: TRANSIENT ISCHAEMIC ATTACK
     Dosage: DAILY DOSE:75MG-FREQ:DAILY
     Route: 048
     Dates: start: 20070101

REACTIONS (2)
  - CELL DEATH [None]
  - HEPATITIS [None]
